FAERS Safety Report 15292724 (Version 1)
Quarter: 2018Q3

REPORT INFORMATION
  Report Type: Spontaneous
  Country: US (occurrence: US)
  Receive Date: 20180806
  Receipt Date: 20180806
  Transmission Date: 20181010
  Serious: Yes (Life-Threatening, Hospitalization)
  Sender: FDA-Public Use
  Company Number: None

PATIENT
  Age: 61 Year
  Sex: Male
  Weight: 126 kg

DRUGS (22)
  1. ASA [Concomitant]
     Active Substance: ASPIRIN
  2. DICYCLOMINE [Concomitant]
     Active Substance: DICYCLOMINE HYDROCHLORIDE
  3. WARFARIN [Concomitant]
     Active Substance: WARFARIN
  4. KLOR?CON [Concomitant]
     Active Substance: POTASSIUM CHLORIDE
  5. LANTUS [Concomitant]
     Active Substance: INSULIN GLARGINE
  6. PROMETHAZINE [Concomitant]
     Active Substance: PROMETHAZINE\PROMETHAZINE HYDROCHLORIDE
  7. VERAPAMIL [Concomitant]
     Active Substance: VERAPAMIL HYDROCHLORIDE
  8. CLONIDINE. [Concomitant]
     Active Substance: CLONIDINE
  9. RANEXA [Concomitant]
     Active Substance: RANOLAZINE
  10. ULORIC [Concomitant]
     Active Substance: FEBUXOSTAT
  11. FLEXERIL [Concomitant]
     Active Substance: CYCLOBENZAPRINE HYDROCHLORIDE
  12. IMDUR [Concomitant]
     Active Substance: ISOSORBIDE MONONITRATE
  13. NIACIN. [Concomitant]
     Active Substance: NIACIN
  14. TORSEMIDE. [Concomitant]
     Active Substance: TORSEMIDE
  15. KRYSTEXXA [Suspect]
     Active Substance: PEGLOTICASE
     Dates: start: 20180723, end: 20180723
  16. FERROUS SULFATE. [Concomitant]
     Active Substance: FERROUS SULFATE
  17. HUMALOG [Concomitant]
     Active Substance: INSULIN LISPRO
  18. HYDROXYZINE [Concomitant]
     Active Substance: HYDROXYZINE HYDROCHLORIDE
  19. ZANTAC [Concomitant]
     Active Substance: RANITIDINE HYDROCHLORIDE
  20. BUSPAR [Concomitant]
     Active Substance: BUSPIRONE HYDROCHLORIDE
  21. COREG [Concomitant]
     Active Substance: CARVEDILOL
  22. METOLAZONE. [Concomitant]
     Active Substance: METOLAZONE

REACTIONS (1)
  - Acute myocardial infarction [None]

NARRATIVE: CASE EVENT DATE: 20180724
